FAERS Safety Report 17912617 (Version 2)
Quarter: 2020Q2

REPORT INFORMATION
  Report Type: Spontaneous
  Country: AR (occurrence: AR)
  Receive Date: 20200618
  Receipt Date: 20200623
  Transmission Date: 20200714
  Serious: Yes (Other)
  Sender: FDA-Public Use
  Company Number: AR-UCBSA-2020023949

PATIENT
  Age: 7 Year
  Sex: Male

DRUGS (2)
  1. KEPPRA [Suspect]
     Active Substance: LEVETIRACETAM
     Indication: SEIZURE
     Dosage: UNK, 2X/DAY (BID)
     Dates: start: 20200605, end: 20200605
  2. KEPPRA [Suspect]
     Active Substance: LEVETIRACETAM
     Dosage: 2.5 CC, 2X/DAY (BID)
     Route: 048
     Dates: start: 20200606, end: 20200607

REACTIONS (9)
  - Depressed mood [Not Recovered/Not Resolved]
  - Mood altered [Not Recovered/Not Resolved]
  - Euphoric mood [Not Recovered/Not Resolved]
  - Panic attack [Unknown]
  - Aggression [Unknown]
  - Inappropriate schedule of product administration [Unknown]
  - Intentional self-injury [Unknown]
  - Tremor [Unknown]
  - Withdrawal syndrome [Not Recovered/Not Resolved]

NARRATIVE: CASE EVENT DATE: 20200606
